FAERS Safety Report 5119791-X (Version None)
Quarter: 2006Q4

REPORT INFORMATION
  Report Type: 
  Country: None (occurrence: None)
  Receive Date: 20061003
  Receipt Date: 20060921
  Transmission Date: 20070319
  Serious: Yes (Hospitalization)
  Sender: FDA-Public Use
  Company Number: US-BRISTOL-MYERS SQUIBB COMPANY-13517883

PATIENT
  Age: 83 Year
  Sex: Female

DRUGS (11)
  1. COUMADIN [Suspect]
     Indication: ATRIAL FIBRILLATION
     Dates: start: 20040101, end: 20060830
  2. COUMADIN [Suspect]
     Route: 048
     Dates: start: 20040101, end: 20060830
  3. NAMENDA [Suspect]
     Indication: AMNESIA
     Route: 048
     Dates: start: 20060828, end: 20060903
  4. NAMENDA [Suspect]
     Route: 048
     Dates: start: 20060904
  5. THALIDOMIDE [Concomitant]
  6. ZOLOFT [Concomitant]
  7. ATENOLOL [Concomitant]
  8. FUROSEMIDE [Concomitant]
  9. POTASSIUM [Concomitant]
  10. MEGESTROL ACETATE [Concomitant]
     Dates: end: 20060830
  11. MEGESTROL ACETATE [Concomitant]
     Dates: start: 20060901

REACTIONS (5)
  - ANTICOAGULATION DRUG LEVEL ABOVE THERAPEUTIC [None]
  - ASTHENIA [None]
  - CONTUSION [None]
  - FALL [None]
  - SOMNOLENCE [None]
